FAERS Safety Report 6856151-5 (Version None)
Quarter: 2010Q3

REPORT INFORMATION
  Report Type: 
  Country: None (occurrence: None)
  Receive Date: 20100719
  Receipt Date: 20100708
  Transmission Date: 20110219
  Serious: Yes (Hospitalization)
  Sender: FDA-Public Use
  Company Number: PHHY2010MX44948

PATIENT
  Age: 75 Year
  Sex: Male

DRUGS (2)
  1. EXFORGE [Suspect]
     Indication: HYPERTENSION
     Dosage: ONE TABLET (160/5 MG) PER DAY
     Dates: start: 20090101
  2. OBINESE [Concomitant]

REACTIONS (2)
  - CYTOREDUCTIVE SURGERY [None]
  - THYROID NEOPLASM [None]
